FAERS Safety Report 5919245-4 (Version None)
Quarter: 2008Q4

REPORT INFORMATION
  Report Type: 
  Country: None (occurrence: None)
  Receive Date: 20081014
  Receipt Date: 20081014
  Transmission Date: 20090506
  Serious: Yes (Other)
  Sender: FDA-Public Use
  Company Number: None

PATIENT
  Sex: Female
  Weight: 27.2158 kg

DRUGS (3)
  1. SINGULAIR [Suspect]
     Indication: HYPERSENSITIVITY
     Dosage: 5MG DAILY PO
     Route: 048
     Dates: start: 20080501, end: 20080523
  2. ZYRTEC [Suspect]
     Indication: HYPERSENSITIVITY
     Dosage: 10MG DAILY PO
     Route: 048
     Dates: start: 20080605, end: 20080608
  3. VERAMYST [Concomitant]

REACTIONS (13)
  - ANXIETY [None]
  - DYSPHAGIA [None]
  - DYSPNOEA [None]
  - HALLUCINATIONS, MIXED [None]
  - OBSESSIVE-COMPULSIVE DISORDER [None]
  - PALPITATIONS [None]
  - PANIC ATTACK [None]
  - PARAESTHESIA [None]
  - RESTLESSNESS [None]
  - SENSORY DISTURBANCE [None]
  - SLEEP TERROR [None]
  - STOMATITIS [None]
  - SUICIDAL IDEATION [None]
